FAERS Safety Report 20930398 (Version 1)
Quarter: 2022Q2

REPORT INFORMATION
  Report Type: Other
  Country: GB (occurrence: None)
  Receive Date: 20220608
  Receipt Date: 20220608
  Transmission Date: 20220721
  Serious: Yes (Other)
  Sender: FDA-Public Use
  Company Number: GB-ROCHE-3110604

PATIENT
  Age: 38 Year
  Sex: Female

DRUGS (1)
  1. OCREVUS [Suspect]
     Active Substance: OCRELIZUMAB
     Indication: Relapsing-remitting multiple sclerosis
     Dosage: THE FIRST TIME RECEIVING THE FULL 600MG DOSE ON 01-JUN-2022
     Route: 041
     Dates: start: 20211124

REACTIONS (5)
  - COVID-19 [Recovered/Resolved]
  - Tonsillitis [Recovered/Resolved]
  - Kidney infection [Recovered/Resolved]
  - Heart rate increased [Recovered/Resolved]
  - Headache [Recovered/Resolved]

NARRATIVE: CASE EVENT DATE: 20220424
